FAERS Safety Report 4521045-7 (Version None)
Quarter: 2004Q4

REPORT INFORMATION
  Report Type: 
  Country: None (occurrence: None)
  Receive Date: 20041206
  Receipt Date: 20041123
  Transmission Date: 20050328
  Serious: Yes (Hospitalization)
  Sender: FDA-Public Use
  Company Number: SE-2004-035661

PATIENT
  Sex: Female

DRUGS (1)
  1. BETAFERON (INTERFERON BETA-1B)INJECTION 250 UG [Suspect]
     Indication: MULTIPLE SCLEROSIS
     Dosage: 8 MIU,SUBCUTANEOUS
     Route: 058

REACTIONS (1)
  - CROHN'S DISEASE [None]
